FAERS Safety Report 21612727 (Version 1)
Quarter: 2022Q4

REPORT INFORMATION
  Report Type: Spontaneous
  Country: TW (occurrence: TW)
  Receive Date: 20221118
  Receipt Date: 20221118
  Transmission Date: 20230113
  Serious: Yes (Life-Threatening, Hospitalization, Other)
  Sender: FDA-Public Use
  Company Number: TW-ALKEM LABORATORIES LIMITED-TW-ALKEM-2022-12557

PATIENT
  Age: 61 Year
  Sex: Male

DRUGS (1)
  1. METFORMIN HYDROCHLORIDE [Suspect]
     Active Substance: METFORMIN HYDROCHLORIDE
     Indication: Type 2 diabetes mellitus
     Dosage: 20 GRAM
     Route: 048

REACTIONS (6)
  - Lactic acidosis [Unknown]
  - Toxicity to various agents [Unknown]
  - Shock [Recovering/Resolving]
  - Acute kidney injury [Unknown]
  - Suicide attempt [Unknown]
  - Overdose [Unknown]
